FAERS Safety Report 4341602-0 (Version None)
Quarter: 2004Q2

REPORT INFORMATION
  Report Type: 
  Country: None (occurrence: None)
  Receive Date: 20040419
  Receipt Date: 20040419
  Transmission Date: 20050107
  Serious: Yes (Other)
  Sender: FDA-Public Use
  Company Number: None

PATIENT
  Age: 25 Year
  Sex: Female
  Weight: 53.5244 kg

DRUGS (2)
  1. EFFEXOR XR [Suspect]
     Indication: DEPRESSION
     Dosage: 150 MG ONCE A DAY ORAL
     Route: 048
     Dates: start: 20030515, end: 20040305
  2. EFFEXOR XR [Suspect]
     Indication: DEPRESSION
     Dosage: 75 MG ONCE A DAY ORAL
     Route: 048
     Dates: start: 20040306, end: 20040314

REACTIONS (1)
  - DRUG WITHDRAWAL SYNDROME [None]
